FAERS Safety Report 13472284 (Version 1)
Quarter: 2017Q2

REPORT INFORMATION
  Report Type: Spontaneous
  Country: JP (occurrence: JP)
  Receive Date: 20170424
  Receipt Date: 20170424
  Transmission Date: 20170830
  Serious: Yes (Life-Threatening, Hospitalization, Other)
  Sender: FDA-Public Use
  Company Number: JP-GLAXOSMITHKLINE-JP2017057604

PATIENT
  Age: 81 Year
  Sex: Female

DRUGS (2)
  1. CARVEDILOL. [Suspect]
     Active Substance: CARVEDILOL
  2. CIBENZOLINE [Suspect]
     Active Substance: CIFENLINE

REACTIONS (1)
  - Drug ineffective [Unknown]
